FAERS Safety Report 7669682-5 (Version None)
Quarter: 2011Q3

REPORT INFORMATION
  Report Type: 
  Country: None (occurrence: None)
  Receive Date: 20110808
  Receipt Date: 20110801
  Transmission Date: 20111222
  Serious: Yes (Other)
  Sender: FDA-Public Use
  Company Number: US-ABBOTT-11P-163-0844016-00

PATIENT
  Age: 64 Year
  Sex: Male

DRUGS (6)
  1. ANTI INFLAMMATORY [Concomitant]
     Indication: PRODUCT USED FOR UNKNOWN INDICATION
  2. METHOTREXATE [Concomitant]
     Indication: PRODUCT USED FOR UNKNOWN INDICATION
     Dosage: 8 TABLETS EVERY SUNDAY
     Route: 048
  3. PROBIOTICS [Concomitant]
     Indication: PRODUCT USED FOR UNKNOWN INDICATION
     Dosage: DAILY
  4. PRILOSEC [Concomitant]
     Indication: PRODUCT USED FOR UNKNOWN INDICATION
     Dosage: DAILY
     Route: 048
  5. HUMIRA [Suspect]
     Indication: PSORIATIC ARTHROPATHY
  6. DILACOR XR [Concomitant]
     Indication: BLOOD PRESSURE INCREASED
     Route: 048

REACTIONS (8)
  - FOOT FRACTURE [None]
  - OEDEMA PERIPHERAL [None]
  - INJECTION SITE PAIN [None]
  - PAIN IN EXTREMITY [None]
  - INFECTION [None]
  - PATIENT-DEVICE INCOMPATIBILITY [None]
  - INJECTION SITE PRURITUS [None]
  - PSORIASIS [None]
